FAERS Safety Report 9783556 (Version 3)
Quarter: 2014Q1

REPORT INFORMATION
  Report Type: Spontaneous
  Country: US (occurrence: US)
  Receive Date: 20131226
  Receipt Date: 20140206
  Transmission Date: 20141002
  Serious: No
  Sender: FDA-Public Use
  Company Number: US-PFIZER INC-2013368499

PATIENT
  Age: 46 Year
  Sex: Female

DRUGS (4)
  1. LYRICA [Suspect]
     Dosage: 50 MG, 3X/DAY
  2. CELEBREX [Suspect]
     Dosage: 200 MG, 2X/DAY
  3. LEXAPRO [Concomitant]
     Dosage: 20 MG, 1X/DAY
  4. NAPROXEN [Concomitant]
     Dosage: 500 MG, 2X/DAY

REACTIONS (2)
  - Depression [Unknown]
  - Disturbance in attention [Unknown]
